FAERS Safety Report 5522111-X (Version None)
Quarter: 2007Q4

REPORT INFORMATION
  Report Type: 
  Country: None (occurrence: None)
  Receive Date: 20071115
  Receipt Date: 20071029
  Transmission Date: 20080405
  Serious: Yes (Death)
  Sender: FDA-Public Use
  Company Number: 8027788

PATIENT
  Age: 64 Year
  Sex: Male

DRUGS (4)
  1. PREDNISOLONE [Suspect]
     Indication: BRONCHOSPASM
     Dosage: 30 MG/ D PO
     Route: 048
  2. PREDNISOLONE [Suspect]
     Indication: EOSINOPHILIA
     Dosage: 30 MG/ D PO
     Route: 048
  3. OMEPRAZOLE [Concomitant]
  4. IVERMECTIN [Concomitant]

REACTIONS (6)
  - ASPIRATION TRACHEAL ABNORMAL [None]
  - CONFUSIONAL STATE [None]
  - HYPOTENSION [None]
  - MULTI-ORGAN FAILURE [None]
  - PYREXIA [None]
  - STRONGYLOIDIASIS [None]
